FAERS Safety Report 9465069 (Version 2)
Quarter: 2013Q4

REPORT INFORMATION
  Report Type: Spontaneous
  Country: US (occurrence: US)
  Receive Date: 20130819
  Receipt Date: 20131126
  Transmission Date: 20140711
  Serious: No
  Sender: FDA-Public Use
  Company Number: US-PFIZER INC-2013236771

PATIENT
  Age: 18 Year
  Sex: Female
  Weight: 46.26 kg

DRUGS (2)
  1. CLINDAMYCIN PHOSPHATE [Suspect]
     Indication: SKIN LESION
     Dosage: UNK, 2X/DAY
     Route: 061
     Dates: start: 2012
  2. CLINDAMYCIN PHOSPHATE [Suspect]
     Indication: ACNE

REACTIONS (1)
  - Drug ineffective [Unknown]
